FAERS Safety Report 13227475 (Version 1)
Quarter: 2017Q1

REPORT INFORMATION
  Report Type: Spontaneous
  Country: JP (occurrence: JP)
  Receive Date: 20170213
  Receipt Date: 20170213
  Transmission Date: 20170428
  Serious: Yes (Hospitalization)
  Sender: FDA-Public Use
  Company Number: JP-ELI_LILLY_AND_COMPANY-JP201701004936

PATIENT
  Age: 65 Year
  Sex: Male

DRUGS (6)
  1. BAYASPIRIN [Concomitant]
     Active Substance: ASPIRIN
     Dosage: UNK
     Route: 048
     Dates: start: 201308
  2. ARICEPT [Concomitant]
     Active Substance: DONEPEZIL HYDROCHLORIDE
     Dosage: UNK
     Route: 048
  3. TRULICITY [Suspect]
     Active Substance: DULAGLUTIDE
     Indication: DIABETES MELLITUS
     Dosage: 0.75 MG, WEEKLY (1/W)
     Route: 058
     Dates: start: 20161105, end: 20161209
  4. RIVOTRIL [Suspect]
     Active Substance: CLONAZEPAM
     Indication: HICCUPS
     Dosage: 0.5 MG, BID
     Route: 048
     Dates: start: 201612
  5. TRULICITY [Suspect]
     Active Substance: DULAGLUTIDE
     Dosage: UNK
     Route: 058
     Dates: start: 20170114
  6. ARTIST [Concomitant]
     Active Substance: CARVEDILOL
     Dosage: UNK
     Route: 048

REACTIONS (2)
  - Hiccups [Recovered/Resolved]
  - Parkinsonism [Unknown]

NARRATIVE: CASE EVENT DATE: 201612
